FAERS Safety Report 9399861 (Version 4)
Quarter: 2014Q2

REPORT INFORMATION
  Report Type: Spontaneous
  Country: CN (occurrence: CN)
  Receive Date: 20130715
  Receipt Date: 20140512
  Transmission Date: 20141212
  Serious: Yes (Life-Threatening, Hospitalization)
  Sender: FDA-Public Use
  Company Number: PHHY2013CN074491

PATIENT
  Sex: Female

DRUGS (2)
  1. TEGRETOL [Suspect]
     Indication: EPILEPSY
     Dosage: 0.5 DF, TID
     Route: 048
  2. TEGRETOL [Suspect]
     Dosage: 1 DF, QD
     Route: 048
     Dates: start: 20030712

REACTIONS (2)
  - Haemoptysis [Recovered/Resolved]
  - Platelet count decreased [Recovered/Resolved]
